FAERS Safety Report 17130007 (Version 4)
Quarter: 2020Q2

REPORT INFORMATION
  Report Type: Spontaneous
  Country: US (occurrence: US)
  Receive Date: 20191209
  Receipt Date: 20200512
  Transmission Date: 20200713
  Serious: Yes (Other)
  Sender: FDA-Public Use
  Company Number: US-SA-2019SA339031

PATIENT
  Age: 57 Year
  Sex: Female

DRUGS (1)
  1. KEVZARA [Suspect]
     Active Substance: SARILUMAB
     Indication: RHEUMATOID ARTHRITIS
     Dosage: 200 MG, QOW
     Route: 058
     Dates: start: 20191105

REACTIONS (6)
  - Rash [Unknown]
  - Injection site rash [Unknown]
  - Injection site erythema [Unknown]
  - Rash macular [Not Recovered/Not Resolved]
  - Paralysis [Unknown]
  - Injection site warmth [Unknown]

NARRATIVE: CASE EVENT DATE: 201911
